FAERS Safety Report 16800067 (Version 1)
Quarter: 2019Q4

REPORT INFORMATION
  Report Type: Spontaneous
  Country: US (occurrence: US)
  Receive Date: 20190912
  Receipt Date: 20190912
  Transmission Date: 20200122
  Serious: Yes (Hospitalization)
  Sender: FDA-Public Use
  Company Number: None

PATIENT
  Age: 59 Year
  Sex: Male

DRUGS (8)
  1. PREDNISONE. [Concomitant]
     Active Substance: PREDNISONE
  2. TACROLIMUS. [Concomitant]
     Active Substance: TACROLIMUS
  3. ENBREL [Suspect]
     Active Substance: ETANERCEPT
     Indication: RHEUMATOID ARTHRITIS
     Dosage: ?          OTHER FREQUENCY:EVERY WEEK;?
     Route: 058
     Dates: start: 20160621
  4. VIRT-PHOS [Concomitant]
  5. VIRT-PHOS [Concomitant]
  6. MAGNESIUM-OX [Concomitant]
  7. VALGANCICLOV [Concomitant]
  8. METOPROL TAR [Concomitant]

REACTIONS (2)
  - Therapy cessation [None]
  - Renal transplant [None]

NARRATIVE: CASE EVENT DATE: 20190902
